FAERS Safety Report 7034482-6 (Version None)
Quarter: 2010Q4

REPORT INFORMATION
  Report Type: 
  Country: None (occurrence: None)
  Receive Date: 20101008
  Receipt Date: 20100930
  Transmission Date: 20110411
  Serious: Yes (Hospitalization)
  Sender: FDA-Public Use
  Company Number: US-PERRIGO-10US013555

PATIENT
  Sex: Male
  Weight: 85.261 kg

DRUGS (3)
  1. NAPROXEN SODIUM [Suspect]
     Indication: BACK PAIN
     Dosage: 2-4 CAPLETS PER DAY
     Route: 048
     Dates: start: 20100902, end: 20100924
  2. SIMVASTATIN [Concomitant]
     Indication: HYPERCHOLESTEROLAEMIA
     Dosage: 40 MG, QD
     Route: 048
     Dates: start: 20050101
  3. OMEPRAZOLE [Concomitant]
     Indication: GASTROOESOPHAGEAL REFLUX DISEASE
     Dosage: 20 MG, QD
     Route: 048
     Dates: start: 20020101

REACTIONS (3)
  - DRUG ADMINISTRATION ERROR [None]
  - ERYTHEMA [None]
  - OEDEMA PERIPHERAL [None]
